FAERS Safety Report 8058655-9 (Version None)
Quarter: 2012Q1

REPORT INFORMATION
  Report Type: 
  Country: None (occurrence: None)
  Receive Date: 20120113
  Receipt Date: 20120110
  Transmission Date: 20120608
  Serious: Yes (Death)
  Sender: FDA-Public Use
  Company Number: 1000026965

PATIENT
  Age: 53 Year
  Sex: Female

DRUGS (8)
  1. FENTANYL [Suspect]
     Dosage: TRANSDERMAL
     Route: 062
  2. ACETAMINOPHEN AND OXYCODONE HCL [Suspect]
  3. ACETAMINOPHEN AND HYDROCODONE BITARTRATE [Suspect]
  4. ZOLPIDEM [Suspect]
  5. CARISOPRODOL [Suspect]
  6. ALPRAZOLAM [Suspect]
  7. LEVOTHROID [Suspect]
  8. TOLTERODINE TARTRATE [Suspect]

REACTIONS (3)
  - COMPLETED SUICIDE [None]
  - CARDIAC ARREST [None]
  - RESPIRATORY ARREST [None]
